FAERS Safety Report 5413675-5 (Version None)
Quarter: 2007Q3

REPORT INFORMATION
  Report Type: 
  Country: None (occurrence: None)
  Receive Date: 20070810
  Receipt Date: 20070802
  Transmission Date: 20080115
  Serious: Yes (Life-Threatening)
  Sender: FDA-Public Use
  Company Number: TPG2007A00518

PATIENT
  Age: 67 Year
  Sex: Female

DRUGS (4)
  1. ACTOS [Suspect]
     Indication: DIABETES MELLITUS
     Dosage: 30 MG PER ORAL
     Route: 048
  2. LOCOL (FLUVASTATIN SODIUM) [Concomitant]
  3. INEGY (SIMVASTATIN, EZETIMIBE) [Concomitant]
  4. INSULIN (INSULIN) [Concomitant]

REACTIONS (1)
  - HYPOGLYCAEMIC UNCONSCIOUSNESS [None]
